FAERS Safety Report 12333556 (Version 1)
Quarter: 2016Q2

REPORT INFORMATION
  Report Type: Spontaneous
  Country: US (occurrence: US)
  Receive Date: 20160504
  Receipt Date: 20160504
  Transmission Date: 20160815
  Serious: No
  Sender: FDA-Public Use
  Company Number: US-ROCHE-1697741

PATIENT
  Sex: Male
  Weight: 70.37 kg

DRUGS (3)
  1. ADCIRCA [Suspect]
     Active Substance: TADALAFIL
     Indication: PRODUCT USED FOR UNKNOWN INDICATION
     Route: 065
  2. LETAIRIS [Suspect]
     Active Substance: AMBRISENTAN
     Indication: PRODUCT USED FOR UNKNOWN INDICATION
     Route: 065
  3. ESBRIET [Suspect]
     Active Substance: PIRFENIDONE
     Indication: POSTPARTUM HAEMORRHAGE
     Dosage: 3 CAPSULES THREE TIMES A DAY WITH FOOD
     Route: 048
     Dates: start: 20150624

REACTIONS (2)
  - Drug ineffective [Unknown]
  - No adverse event [Unknown]
